FAERS Safety Report 10032580 (Version 2)
Quarter: 2014Q1

REPORT INFORMATION
  Report Type: Spontaneous
  Country: US (occurrence: US)
  Receive Date: 20140324
  Receipt Date: 20140324
  Transmission Date: 20141002
  Serious: Yes (Hospitalization)
  Sender: FDA-Public Use
  Company Number: US-GLAXOSMITHKLINE-A0699368A

PATIENT
  Age: 64 Year
  Sex: Female
  Weight: 97.7 kg

DRUGS (3)
  1. AVANDIA [Suspect]
     Indication: DIABETES MELLITUS
     Dosage: 4MG PER DAY
     Route: 048
     Dates: start: 2001, end: 20061016
  2. GLUCOVANCE [Concomitant]
  3. LIPITOR [Concomitant]

REACTIONS (4)
  - Myocardial infarction [Unknown]
  - Heart injury [Unknown]
  - Cardiac failure congestive [Unknown]
  - Angina unstable [Unknown]
